FAERS Safety Report 6221359-9 (Version None)
Quarter: 2009Q2

REPORT INFORMATION
  Report Type: 
  Country: None (occurrence: None)
  Receive Date: 20090610
  Receipt Date: 20090605
  Transmission Date: 20091009
  Serious: Yes (Disabling)
  Sender: FDA-Public Use
  Company Number: DE-AVENTIS-200911431DE

PATIENT
  Age: 48 Year
  Sex: Female

DRUGS (3)
  1. ENOXAPARIN SODIUM [Suspect]
     Indication: THROMBOSIS PROPHYLAXIS
     Dosage: DOSE: 0.4 ML
     Route: 058
     Dates: start: 20090326, end: 20090602
  2. OMEP [Concomitant]
     Indication: PROPHYLAXIS
     Dosage: DOSE: 1-0-1
     Route: 048
     Dates: start: 20090101
  3. VOLTAREN [Concomitant]
     Indication: PAIN
     Dosage: DOSE: 1-0-1
     Route: 048
     Dates: start: 20090101

REACTIONS (1)
  - RESTLESSNESS [None]
